FAERS Safety Report 9467078 (Version 2)
Quarter: 2013Q3

REPORT INFORMATION
  Report Type: Spontaneous
  Country: US (occurrence: US)
  Receive Date: 20130820
  Receipt Date: 20130903
  Transmission Date: 20140515
  Serious: No
  Sender: FDA-Public Use
  Company Number: US-PFIZER INC-2013236825

PATIENT
  Sex: Female

DRUGS (1)
  1. ESTRING [Suspect]
     Indication: HOT FLUSH
     Dosage: UNK

REACTIONS (1)
  - Drug ineffective [Unknown]
